FAERS Safety Report 4885718-9 (Version None)
Quarter: 2006Q1

REPORT INFORMATION
  Report Type: 
  Country: None (occurrence: None)
  Receive Date: 20060117
  Receipt Date: 20060104
  Transmission Date: 20060701
  Serious: Yes (Other)
  Sender: FDA-Public Use
  Company Number: 2006AL000048

PATIENT
  Age: 38 Year
  Sex: Male

DRUGS (4)
  1. PHENOBARBITAL TABLETS USP, 30 MG (PUREPAC) (PHENOBARBITAL TABLETS USP, [Suspect]
     Indication: EPILEPSY
  2. PHENYTOIN ORAL SUSPENSION USP, 125 MG/5 ML (ALPHARMA) (PHENYTOIN ORAL [Suspect]
     Indication: EPILEPSY
  3. CARBAMAZEPINE [Suspect]
     Indication: EPILEPSY
  4. VALPROIC ACID [Suspect]
     Indication: EPILEPSY

REACTIONS (6)
  - BACK PAIN [None]
  - CONVULSION [None]
  - OSTEOLYSIS [None]
  - OSTEOPOROSIS [None]
  - THORACIC VERTEBRAL FRACTURE [None]
  - TRAUMATIC FRACTURE [None]
